FAERS Safety Report 13186169 (Version 1)
Quarter: 2017Q1

REPORT INFORMATION
  Report Type: Spontaneous
  Country: US (occurrence: US)
  Receive Date: 20170204
  Receipt Date: 20170204
  Transmission Date: 20170428
  Serious: Yes (Hospitalization)
  Sender: FDA-Public Use
  Company Number: US-BION-005944

PATIENT
  Sex: Female

DRUGS (1)
  1. LOPERAMIDE 2MG SOFTGEL 12CT [Suspect]
     Active Substance: LOPERAMIDE
     Indication: DIARRHOEA
     Route: 048

REACTIONS (8)
  - Abasia [None]
  - Product tampering [None]
  - Feeding disorder [None]
  - Vomiting [Unknown]
  - Product packaging issue [Unknown]
  - Abdominal pain upper [Not Recovered/Not Resolved]
  - Weight decreased [None]
  - Product blister packaging issue [None]
